FAERS Safety Report 20638669 (Version 1)
Quarter: 2022Q1

REPORT INFORMATION
  Report Type: Spontaneous
  Country: CN (occurrence: CN)
  Receive Date: 20220325
  Receipt Date: 20220325
  Transmission Date: 20220423
  Serious: Yes (Other)
  Sender: FDA-Public Use
  Company Number: CN-PFIZER INC-202200440847

PATIENT
  Age: 56 Year
  Sex: Female
  Weight: 49.5 kg

DRUGS (3)
  1. PREGABALIN [Suspect]
     Active Substance: PREGABALIN
     Indication: Cancer pain
     Dosage: 75 MG, 2X/DAY
     Route: 048
     Dates: start: 20220311, end: 20220315
  2. CELECOXIB [Suspect]
     Active Substance: CELECOXIB
     Indication: Cancer pain
     Dosage: 0.2 G, 2X/DAY
     Route: 048
     Dates: start: 20220311, end: 20220315
  3. FENTANYL [Suspect]
     Active Substance: FENTANYL
     Indication: Cancer pain
     Dosage: 4.2 MG, ONCE EVERY 3 DAYS
     Route: 061
     Dates: start: 20220311, end: 20220315

REACTIONS (7)
  - Gastrointestinal disorder [Recovering/Resolving]
  - Nausea [Recovering/Resolving]
  - Vomiting [Recovering/Resolving]
  - Pollakiuria [Recovering/Resolving]
  - Abnormal faeces [Recovering/Resolving]
  - Dysuria [Recovering/Resolving]
  - Off label use [Unknown]

NARRATIVE: CASE EVENT DATE: 20220311
